FAERS Safety Report 7650018-0 (Version None)
Quarter: 2011Q3

REPORT INFORMATION
  Report Type: 
  Country: None (occurrence: None)
  Receive Date: 20110719
  Receipt Date: 20100908
  Transmission Date: 20111222
  Serious: Yes (Hospitalization, Disabling)
  Sender: FDA-Public Use
  Company Number: 163-50794-10080560

PATIENT
  Age: 68 Year
  Sex: Female

DRUGS (13)
  1. METFORMIN HCL [Concomitant]
  2. ZOCOR (SIMVASTATIN) (UNKNOWN) [Concomitant]
  3. GLIPZIIDE (GLIPIZIDE) (UNKNOWN) [Concomitant]
  4. CRESTOR (ROSUVASTATIN) (UNKNOWN) [Concomitant]
  5. COZAAR [Concomitant]
  6. AMBIEN [Concomitant]
  7. OXYCODONE (OXYCODONE) (UNKNOWN) [Concomitant]
  8. ONGLYZA (SAXAGLIPTIN HYDROCHLORIDE) (UNKNOWN) [Concomitant]
  9. VIDAZA [Suspect]
     Indication: REFRACTORY ANAEMIA WITH AN EXCESS OF BLASTS
     Dosage: 130 MG, DAILY, IV
     Route: 042
     Dates: start: 20100713, end: 20100716
  10. TENEX (GUANFACINE HYDROCHLORIDE) (UNKNOWN) [Concomitant]
  11. LOTRISONE (LOTRISONE) (UNKNOWN) [Concomitant]
  12. COLACE (DOCUSATE SODIUM) (UNKNOWN) [Concomitant]
  13. ACTOS (PIOGLITAZONE) (UNKNOWN) [Concomitant]

REACTIONS (2)
  - RASH [None]
  - CELLULITIS [None]
